FAERS Safety Report 7540691-X (Version None)
Quarter: 2011Q2

REPORT INFORMATION
  Report Type: 
  Country: None (occurrence: None)
  Receive Date: 20110610
  Receipt Date: 20110606
  Transmission Date: 20111010
  Serious: Yes (Other)
  Sender: FDA-Public Use
  Company Number: US-PFIZER INC-2011089533

PATIENT
  Age: 47 Year
  Sex: Male

DRUGS (3)
  1. LIPITOR [Concomitant]
     Dosage: UNK
  2. LEXISCAN [Suspect]
     Indication: SCAN MYOCARDIAL PERFUSION
     Dosage: 0.08 MG/ML, BOLUS OVER 15 SECONDS
     Route: 042
  3. VIAGRA [Suspect]
     Dosage: UNK

REACTIONS (4)
  - HEART RATE DECREASED [None]
  - HYPERHIDROSIS [None]
  - PRESYNCOPE [None]
  - SKIN DISCOLOURATION [None]
